FAERS Safety Report 17750704 (Version 1)
Quarter: 2020Q2

REPORT INFORMATION
  Report Type: Report from Study
  Country: US (occurrence: US)
  Receive Date: 20200506
  Receipt Date: 20200506
  Transmission Date: 20200714
  Serious: Yes (Hospitalization)
  Sender: FDA-Public Use
  Company Number: US-ASTRAZENECA-2020SE47128

PATIENT
  Sex: Female

DRUGS (1)
  1. CALQUENCE [Suspect]
     Active Substance: ACALABRUTINIB
     Indication: CHRONIC LYMPHOCYTIC LEUKAEMIA
     Route: 048

REACTIONS (11)
  - Wound [Unknown]
  - Headache [Unknown]
  - White blood cell count decreased [Unknown]
  - Fall [Unknown]
  - Head injury [Unknown]
  - Pyrexia [Unknown]
  - Ear infection [Unknown]
  - Gait disturbance [Unknown]
  - Contusion [Unknown]
  - Sinusitis [Unknown]
  - Infection [Unknown]
